FAERS Safety Report 4567751-X (Version None)
Quarter: 2005Q1

REPORT INFORMATION
  Report Type: 
  Country: None (occurrence: None)
  Receive Date: 20050127
  Receipt Date: 20050110
  Transmission Date: 20050727
  Serious: Yes (Death)
  Sender: FDA-Public Use
  Company Number: 2004093147

PATIENT
  Sex: Female

DRUGS (1)
  1. ZELDOX (CAPSULES)(ZIPRASIDONE) [Suspect]
     Indication: ILL-DEFINED DISORDER

REACTIONS (1)
  - DEATH [None]
